FAERS Safety Report 7792151-9 (Version None)
Quarter: 2011Q4

REPORT INFORMATION
  Report Type: 
  Country: None (occurrence: None)
  Receive Date: 20111003
  Receipt Date: 20111003
  Transmission Date: 20120403
  Serious: Yes (Hospitalization)
  Sender: FDA-Public Use
  Company Number: None

PATIENT
  Age: 55 Year
  Sex: Female
  Weight: 73 kg

DRUGS (15)
  1. ZIPRASIDONE HYDROCHLORIDE [Suspect]
     Indication: AFFECTIVE DISORDER
     Dosage: 40 MG
     Route: 048
  2. BETAMETHASONE 0.1% CREAM [Concomitant]
     Route: 061
  3. ROSUVASTATIN [Concomitant]
     Route: 048
  4. PREGABALIN [Concomitant]
     Route: 048
  5. OXYCODONE HCL EXTENDED-RELEASE [Concomitant]
  6. FEXOFENADINE [Concomitant]
     Route: 048
  7. ROPINIROLE [Concomitant]
     Route: 048
  8. ESCITALOPRAM [Concomitant]
     Route: 048
  9. ALPRAZOLAM [Concomitant]
  10. CALCIUM + VITAMIN D [Concomitant]
     Route: 048
  11. HYDROCORTISONE [Concomitant]
     Route: 048
  12. CARISOPRODOL [Concomitant]
     Route: 048
  13. BUPROPION HCL [Concomitant]
     Route: 048
  14. HCTZ/SPIRONOLACTONE 25/25 [Concomitant]
     Route: 048
  15. HYDROCORTISONE [Concomitant]
     Route: 048

REACTIONS (5)
  - EXTRAPYRAMIDAL DISORDER [None]
  - PYREXIA [None]
  - GAIT DISTURBANCE [None]
  - DYSARTHRIA [None]
  - ASTHENIA [None]
